FAERS Safety Report 12449247 (Version 2)
Quarter: 2016Q2

REPORT INFORMATION
  Report Type: Spontaneous
  Country: CA (occurrence: CA)
  Receive Date: 20160608
  Receipt Date: 20160616
  Transmission Date: 20160815
  Serious: Yes (Hospitalization)
  Sender: FDA-Public Use
  Company Number: CA-ALLERGAN-1645632US

PATIENT
  Age: 48 Year
  Sex: Female
  Weight: 69.84 kg

DRUGS (6)
  1. FIBRISTAL [Suspect]
     Active Substance: ULIPRISTAL
     Indication: MENORRHAGIA
  2. TRANEXAMIC ACID. [Concomitant]
     Active Substance: TRANEXAMIC ACID
     Indication: MENORRHAGIA
     Dosage: UNK, PRN
  3. FIBRISTAL [Suspect]
     Active Substance: ULIPRISTAL
     Indication: UTERINE LEIOMYOMA
     Dosage: 5 MG, QD
     Route: 048
     Dates: start: 20150128, end: 20160121
  4. NAPROXEN. [Concomitant]
     Active Substance: NAPROXEN
     Indication: DYSMENORRHOEA
     Dosage: 500 MG, BID
  5. SYNTHROID [Concomitant]
     Active Substance: LEVOTHYROXINE SODIUM
     Indication: PRODUCT USED FOR UNKNOWN INDICATION
     Dosage: UNK
  6. FERROUS SULFATE. [Concomitant]
     Active Substance: FERROUS SULFATE
     Indication: ANAEMIA
     Dosage: 300 MG, UNK
     Route: 048
     Dates: start: 20150128

REACTIONS (4)
  - Uterine disorder [Not Recovered/Not Resolved]
  - Adenomyosis [Unknown]
  - Menorrhagia [Not Recovered/Not Resolved]
  - Leiomyoma [Unknown]
